FAERS Safety Report 5322186-7 (Version None)
Quarter: 2007Q2

REPORT INFORMATION
  Report Type: 
  Country: None (occurrence: None)
  Receive Date: 20070511
  Receipt Date: 20070504
  Transmission Date: 20071010
  Serious: Yes (Hospitalization, Other)
  Sender: FDA-Public Use
  Company Number: US-PURDUE-USA_2007_0027266

PATIENT
  Sex: Male

DRUGS (6)
  1. OXYCONTIN [Suspect]
     Indication: DRUG ABUSER
  2. MARIJUANA [Suspect]
     Indication: DRUG ABUSER
  3. COCAINE [Suspect]
     Indication: DRUG ABUSER
  4. VICODIN [Suspect]
     Indication: DRUG ABUSER
  5. PERCOCET [Suspect]
     Indication: DRUG ABUSER
  6. ACETAMINOPHEN W/ PROPOXYPHENE HCL [Suspect]
     Indication: DRUG ABUSER

REACTIONS (3)
  - HEPATIC FAILURE [None]
  - LOSS OF CONSCIOUSNESS [None]
  - SUBSTANCE ABUSE [None]
